FAERS Safety Report 23116873 (Version 1)
Quarter: 2023Q4

REPORT INFORMATION
  Report Type: Spontaneous
  Country: ES (occurrence: ES)
  Receive Date: 20231027
  Receipt Date: 20231027
  Transmission Date: 20240109
  Serious: Yes (Other)
  Sender: FDA-Public Use
  Company Number: ES-SUN PHARMACEUTICAL INDUSTRIES LTD-2023RR-414519

PATIENT
  Age: 47 Year

DRUGS (4)
  1. GEMCITABINE [Suspect]
     Active Substance: GEMCITABINE
     Indication: Fibrosarcoma
     Dosage: 6 CYCLES
     Route: 065
     Dates: start: 202006
  2. TRABECTEDIN [Suspect]
     Active Substance: TRABECTEDIN
     Indication: Fibrosarcoma
     Dosage: 1.5 MILLIGRAM/SQ. METER, 2 CYCLES
     Route: 065
     Dates: start: 202101
  3. TRABECTEDIN [Suspect]
     Active Substance: TRABECTEDIN
     Dosage: 1.2 MILLIGRAM/SQ. METER, UNK
     Route: 065
  4. DACARBAZINE [Suspect]
     Active Substance: DACARBAZINE
     Indication: Fibrosarcoma
     Dosage: 6 CYCLES
     Dates: start: 202006

REACTIONS (4)
  - Disease progression [Unknown]
  - Myalgia [Unknown]
  - Toxicity to various agents [Unknown]
  - Therapeutic product effect incomplete [Unknown]
